FAERS Safety Report 7037261-9 (Version None)
Quarter: 2010Q4

REPORT INFORMATION
  Report Type: 
  Country: None (occurrence: None)
  Receive Date: 20101011
  Receipt Date: 20101004
  Transmission Date: 20110411
  Serious: Yes (Other)
  Sender: FDA-Public Use
  Company Number: JP-ROCHE-731747

PATIENT
  Sex: Female
  Weight: 45 kg

DRUGS (6)
  1. PEGASYS [Suspect]
     Indication: HEPATITIS C
     Route: 058
     Dates: start: 20100812, end: 20100812
  2. PROGRAF [Concomitant]
     Route: 048
     Dates: start: 20091105
  3. PROGRAF [Concomitant]
     Route: 048
     Dates: start: 20091105, end: 20100815
  4. TAKEPRON [Concomitant]
     Route: 048
     Dates: start: 20091101
  5. BAKTAR [Concomitant]
     Dates: start: 20091101
  6. URSO 250 [Concomitant]
     Route: 048
     Dates: start: 20091001

REACTIONS (1)
  - FACIAL SPASM [None]
